FAERS Safety Report 9025376 (Version 1)
Quarter: 2013Q1

REPORT INFORMATION
  Report Type: Spontaneous
  Country: US (occurrence: US)
  Receive Date: 20130122
  Receipt Date: 20130122
  Transmission Date: 20140127
  Serious: Yes (Other)
  Sender: FDA-Public Use
  Company Number: US-PFIZER INC-2013021327

PATIENT
  Age: 49 Year
  Sex: Female
  Weight: 113.4 kg

DRUGS (3)
  1. CHANTIX [Suspect]
     Indication: SMOKING CESSATION THERAPY
     Dosage: 0.5 MG, 1X/DAY
     Route: 048
     Dates: start: 2009
  2. CHANTIX [Suspect]
     Dosage: UNK
     Route: 048
  3. PRISTIQ [Concomitant]
     Indication: ANXIETY
     Dosage: UNK

REACTIONS (2)
  - Weight decreased [Unknown]
  - Abnormal dreams [Unknown]
